FAERS Safety Report 11751284 (Version 1)
Quarter: 2015Q4

REPORT INFORMATION
  Report Type: Spontaneous
  Country: US (occurrence: US)
  Receive Date: 20151118
  Receipt Date: 20151118
  Transmission Date: 20160304
  Serious: Yes (Other)
  Sender: FDA-Public Use
  Company Number: US-NOVOPROD-437302

PATIENT
  Age: 28 Year
  Sex: Male
  Weight: 71.66 kg

DRUGS (4)
  1. LISINOPRIL. [Concomitant]
     Active Substance: LISINOPRIL
     Indication: PRODUCT USED FOR UNKNOWN INDICATION
     Dosage: 5 MG, QD
     Route: 048
     Dates: start: 20140926
  2. NOVOLOG [Suspect]
     Active Substance: INSULIN ASPART
     Indication: TYPE 1 DIABETES MELLITUS
     Dosage: 5 TO 15 UNITS PER MEAL PER INSULIN SLIDING SCALE
     Route: 058
     Dates: start: 20140926
  3. LANTUS [Concomitant]
     Active Substance: INSULIN GLARGINE
     Indication: TYPE 1 DIABETES MELLITUS
     Dosage: 23 U, QD PER INSULIN PROTOCOL
     Route: 058
     Dates: start: 20140926
  4. NAPROXEN. [Concomitant]
     Active Substance: NAPROXEN
     Indication: MYALGIA
     Dosage: 550 MG, BID WITH FOOD AS NEEDED
     Route: 048
     Dates: start: 20140926

REACTIONS (3)
  - Device breakage [Recovered/Resolved]
  - Incorrect dose administered [Recovered/Resolved]
  - Hypoglycaemic seizure [Recovered/Resolved]

NARRATIVE: CASE EVENT DATE: 20150123
